FAERS Safety Report 8127046-4 (Version None)
Quarter: 2012Q1

REPORT INFORMATION
  Report Type: 
  Country: None (occurrence: None)
  Receive Date: 20120210
  Receipt Date: 20120201
  Transmission Date: 20120608
  Serious: Yes (Other)
  Sender: FDA-Public Use
  Company Number: US-SANOFI-AVENTIS-2012SA007045

PATIENT
  Age: 75 Year
  Sex: Male

DRUGS (3)
  1. EFFIENT [Concomitant]
  2. LANTUS [Suspect]
     Dosage: INITIATED LANTUS 24 UNITS IN AM, 26 UNITS IN PM APPROXIMATELY 8-10 YEARS AGO
     Route: 058
  3. SOLOSTAR [Suspect]

REACTIONS (1)
  - CORONARY ARTERIAL STENT INSERTION [None]
